FAERS Safety Report 7034847-2 (Version None)
Quarter: 2010Q4

REPORT INFORMATION
  Report Type: 
  Country: None (occurrence: None)
  Receive Date: 20101008
  Receipt Date: 20100930
  Transmission Date: 20110411
  Serious: Yes (Other)
  Sender: FDA-Public Use
  Company Number: US-GENZYME-FABR-1001558

PATIENT
  Sex: Male
  Weight: 40 kg

DRUGS (2)
  1. FABRAZYME [Suspect]
     Indication: FABRY'S DISEASE
     Dosage: 35 MG, UNK
  2. FABRAZYME [Suspect]
     Dosage: 40 MG, Q2W
     Route: 042
     Dates: start: 20040601

REACTIONS (3)
  - ASTHENIA [None]
  - DISEASE PROGRESSION [None]
  - FAILURE TO THRIVE [None]
